FAERS Safety Report 18981541 (Version 1)
Quarter: 2021Q1

REPORT INFORMATION
  Report Type: Spontaneous
  Country: US (occurrence: US)
  Receive Date: 20210308
  Receipt Date: 20210308
  Transmission Date: 20210420
  Serious: Yes (Hospitalization, Other)
  Sender: FDA-Public Use
  Company Number: US-INSUD PHARMA-2102US00206

PATIENT
  Age: 2 Month
  Sex: Male

DRUGS (4)
  1. CEFTRIAXONE. [Suspect]
     Active Substance: CEFTRIAXONE
     Indication: VIRAL INFECTION
     Dosage: UNKNOWN
     Route: 065
  2. VANCOMYCIN [Suspect]
     Active Substance: VANCOMYCIN
     Indication: VIRAL INFECTION
     Dosage: UNKNOWN
     Route: 065
  3. ACETAMINOFEN [Suspect]
     Active Substance: ACETAMINOPHEN
     Indication: VIRAL INFECTION
     Dosage: UNKNOWN
     Route: 065
  4. ACYCLOVIR. [Suspect]
     Active Substance: ACYCLOVIR
     Indication: VIRAL INFECTION
     Dosage: UNKNOWN
     Route: 065

REACTIONS (12)
  - Epidermal necrosis [Recovering/Resolving]
  - Conjunctival hyperaemia [Recovered/Resolved]
  - Eyelid exfoliation [Recovered/Resolved]
  - Corneal epithelium defect [Recovered/Resolved]
  - Acute respiratory failure [Recovered/Resolved]
  - Symblepharon [Recovered/Resolved]
  - Blister [Recovering/Resolving]
  - Toxic epidermal necrolysis [Recovering/Resolving]
  - Skin exfoliation [Recovering/Resolving]
  - Rash maculo-papular [Recovering/Resolving]
  - Stevens-Johnson syndrome [Recovering/Resolving]
  - Conjunctival staining [Recovered/Resolved]
